FAERS Safety Report 8983959 (Version 1)
Quarter: 2012Q4

REPORT INFORMATION
  Report Type: Spontaneous
  Country: US (occurrence: None)
  Receive Date: 20121218
  Receipt Date: 20121218
  Transmission Date: 20130627
  Serious: Yes (Death)
  Sender: FDA-Public Use
  Company Number: None

PATIENT
  Age: 80 Year
  Sex: Male
  Weight: 122.47 kg

DRUGS (1)
  1. ZOSYN [Suspect]
     Dates: start: 20121201, end: 20121208

REACTIONS (2)
  - Renal impairment [None]
  - Fluid retention [None]
